FAERS Safety Report 25527921 (Version 2)
Quarter: 2025Q3

REPORT INFORMATION
  Report Type: Spontaneous
  Country: EU (occurrence: EU)
  Receive Date: 20250708
  Receipt Date: 20250718
  Transmission Date: 20251021
  Serious: Yes (Other)
  Sender: AUROBINDO
  Company Number: EU-ROCHE-10000309701

PATIENT

DRUGS (7)
  1. OXALIPLATIN [Suspect]
     Active Substance: OXALIPLATIN
     Indication: Neoplasm malignant
     Dosage: 143 MILLIGRAM, *BIWEEKLY(DATE OF MOST RECENT DOSE OF CANCER TREATMENT PRIOR TO AE/SAE ONSET 29-OCT-2
     Route: 042
     Dates: start: 20241015
  2. OXALIPLATIN [Suspect]
     Active Substance: OXALIPLATIN
     Indication: Neoplasm
  3. LEUCOVORIN CALCIUM [Suspect]
     Active Substance: LEUCOVORIN CALCIUM
     Indication: Neoplasm malignant
     Dosage: 840 MILLIGRAM, IWEEKLY(DATE OF MOST RECENT DOSE OF CANCER TREATMENT PRIOR TO AE/SAE ONSET 29-OCT-202
     Route: 042
     Dates: start: 20241015
  4. LEUCOVORIN CALCIUM [Suspect]
     Active Substance: LEUCOVORIN CALCIUM
     Indication: Neoplasm
  5. PANITUMUMAB [Suspect]
     Active Substance: PANITUMUMAB
     Indication: Neoplasm malignant
     Dosage: 360 MILLIGRAM, *BIWEEKLY (DATE OF MOST RECENT DOSE OF CANCER TREATMENT PRIOR TO AE/SAE ONSET: 29-OCT
     Route: 042
     Dates: start: 20241015
  6. PANITUMUMAB [Suspect]
     Active Substance: PANITUMUMAB
     Indication: Neoplasm
  7. FLUOROURACIL [Suspect]
     Active Substance: FLUOROURACIL
     Indication: Neoplasm malignant
     Route: 042
     Dates: start: 20241015

REACTIONS (2)
  - Polyneuropathy [Recovered/Resolved]
  - Diarrhoea [Recovered/Resolved]

NARRATIVE: CASE EVENT DATE: 20241113
